FAERS Safety Report 24347940 (Version 1)
Quarter: 2024Q3

REPORT INFORMATION
  Report Type: Report from Study
  Country: BR (occurrence: BR)
  Receive Date: 20240923
  Receipt Date: 20240923
  Transmission Date: 20241017
  Serious: Yes (Hospitalization, Other)
  Sender: JOHNSON AND JOHNSON
  Company Number: BR-JNJFOC-20240936886

PATIENT
  Age: 64 Year
  Sex: Female
  Weight: 72 kg

DRUGS (1)
  1. TALVEY [Suspect]
     Active Substance: TALQUETAMAB-TGVS
     Indication: Plasma cell myeloma
     Route: 058
     Dates: start: 20240607

REACTIONS (21)
  - Choking [Unknown]
  - Dry mouth [Recovered/Resolved]
  - Feeding disorder [Unknown]
  - Vomiting [Unknown]
  - Weight decreased [Not Recovered/Not Resolved]
  - Taste disorder [Not Recovered/Not Resolved]
  - Constipation [Unknown]
  - Diarrhoea [Unknown]
  - Onychomycosis [Not Recovered/Not Resolved]
  - Pyrexia [Unknown]
  - Skin exfoliation [Unknown]
  - Feeling cold [Not Recovered/Not Resolved]
  - Oral discomfort [Unknown]
  - Pruritus [Unknown]
  - Erythema [Unknown]
  - Dry skin [Unknown]
  - Discouragement [Unknown]
  - Alopecia [Unknown]
  - Tongue erythema [Unknown]
  - Tongue rough [Unknown]
  - Muscle atrophy [Unknown]
